FAERS Safety Report 5864542-4 (Version None)
Quarter: 2008Q3

REPORT INFORMATION
  Report Type: 
  Country: None (occurrence: None)
  Receive Date: 20080829
  Receipt Date: 20080821
  Transmission Date: 20090109
  Serious: Yes (Death)
  Sender: FDA-Public Use
  Company Number: CH-AVENTIS-200818003GDDC

PATIENT
  Age: 85 Year
  Sex: Female
  Weight: 54.3 kg

DRUGS (11)
  1. ARAVA [Suspect]
     Indication: POLYARTHRITIS
     Route: 048
     Dates: start: 20030126, end: 20080702
  2. KONAKION [Concomitant]
     Route: 048
  3. VITARUBIN [Concomitant]
     Route: 048
  4. LIQUEMIN                           /00027701/ [Concomitant]
     Route: 058
  5. FOLIC ACID [Concomitant]
     Route: 048
  6. CALCIUM-SANDOZ                     /00177201/ [Concomitant]
     Dosage: DOSE: UNK
     Route: 048
  7. DISTRANEURIN                       /00027502/ [Concomitant]
     Route: 048
  8. NEXIUM [Concomitant]
     Route: 048
  9. PREDNISONE TAB [Concomitant]
     Route: 048
  10. SIFROL [Concomitant]
     Route: 048
  11. MYCOSTATIN                         /00036501/ [Concomitant]
     Route: 048

REACTIONS (5)
  - DIALYSIS [None]
  - HAEMOLYTIC URAEMIC SYNDROME [None]
  - INTESTINAL PERFORATION [None]
  - NORMOCHROMIC NORMOCYTIC ANAEMIA [None]
  - SEPSIS [None]
